FAERS Safety Report 23744649 (Version 1)
Quarter: 2024Q2

REPORT INFORMATION
  Report Type: Other
  Country: US (occurrence: None)
  Receive Date: 20240415
  Receipt Date: 20240415
  Transmission Date: 20240717
  Serious: Yes (Death)
  Sender: FDA-Public Use
  Company Number: US-ROCHE-3542059

PATIENT
  Age: 86 Year
  Sex: Male

DRUGS (12)
  1. ESBRIET [Suspect]
     Active Substance: PIRFENIDONE
     Indication: Interstitial lung disease
     Dosage: TAKE 2 CAPSULE(S) BY MOUTH 3 TIMES A DAY WITH FOOD?534 MG
     Route: 048
  2. ESBRIET [Suspect]
     Active Substance: PIRFENIDONE
     Indication: Idiopathic pulmonary fibrosis
  3. CETIRIZINE [Concomitant]
     Active Substance: CETIRIZINE HYDROCHLORIDE
     Dosage: 5 MG ORAL TABLET
  4. CLINDAMYCIN [Concomitant]
     Active Substance: CLINDAMYCIN
     Dosage: 300 MG ORAL CAPSULE
  5. DOCUSATE [Concomitant]
     Active Substance: DOCUSATE
     Dosage: 20 MG, ORAL
  6. FERROUS SULFATE [Concomitant]
     Active Substance: FERROUS SULFATE
     Dosage: 325 MG ORAL TABLET
  7. LATANOPROST [Concomitant]
     Active Substance: LATANOPROST
     Dosage: 0.005% OPTHALMIC EMLUSION
  8. LEVOTHYROXINE [Concomitant]
     Active Substance: LEVOTHYROXINE\LEVOTHYROXINE SODIUM
     Dosage: 5 MG ORAL TABLET
  9. MEGESTROL [Concomitant]
     Active Substance: MEGESTROL
     Dosage: 40 MG ORAL TABLET
  10. PANTOPRAZOLE [Concomitant]
     Active Substance: PANTOPRAZOLE
     Dosage: 40 MG ORAL TABLET
  11. PREDNISONE [Concomitant]
     Active Substance: PREDNISONE
     Dosage: 5 MG ORAL TABELT
  12. QUETIAPINE [Concomitant]
     Active Substance: QUETIAPINE
     Dosage: 25 MG ORAL TABLET

REACTIONS (1)
  - Death [Fatal]
